FAERS Safety Report 13069491 (Version 1)
Quarter: 2016Q4

REPORT INFORMATION
  Report Type: Spontaneous
  Country: US (occurrence: US)
  Receive Date: 20161228
  Receipt Date: 20161228
  Transmission Date: 20170207
  Serious: Yes (Hospitalization, Other)
  Sender: FDA-Public Use
  Company Number: US-GLAXOSMITHKLINE-US2016190300

PATIENT
  Age: 33 Year
  Sex: Female

DRUGS (4)
  1. GAVISCON EXTRA STRENGTH [Suspect]
     Active Substance: ALUMINUM HYDROXIDE\MAGNESIUM CARBONATE
     Indication: DYSPEPSIA
  2. GAVISCON EXTRA STRENGTH [Suspect]
     Active Substance: ALUMINUM HYDROXIDE\MAGNESIUM CARBONATE
     Indication: GASTROOESOPHAGEAL REFLUX DISEASE
     Dosage: 4 DF, UNK, HAD TAKEN THESE FOR YEARS
  3. GAVISCON EXTRA STRENGTH [Suspect]
     Active Substance: ALUMINUM HYDROXIDE\MAGNESIUM CARBONATE
     Indication: GASTROOESOPHAGEAL REFLUX DISEASE
     Dosage: UNK, PRN, HAD TAKEN THESE FOR YEARS
  4. GAVISCON EXTRA STRENGTH [Suspect]
     Active Substance: ALUMINUM HYDROXIDE\MAGNESIUM CARBONATE
     Indication: DYSPEPSIA

REACTIONS (1)
  - Renal failure [Unknown]
